FAERS Safety Report 5655689-6 (Version None)
Quarter: 2008Q1

REPORT INFORMATION
  Report Type: 
  Country: None (occurrence: None)
  Receive Date: 20080212
  Receipt Date: 20070705
  Transmission Date: 20080703
  Serious: Yes (Life-Threatening, Hospitalization)
  Sender: FDA-Public Use
  Company Number: MC200700237

PATIENT
  Age: 68 Year
  Sex: Male
  Weight: 85 kg

DRUGS (3)
  1. ANGIOMAX [Suspect]
     Indication: PERCUTANEOUS CORONARY INTERVENTION
     Dosage: 64 MG, BOLUS, IV BOLUS
     Route: 040
     Dates: start: 20070312, end: 20070312
  2. ANGIOMAX [Suspect]
     Dosage: 150 MG, HR, INTRAVENOUS
     Route: 042
     Dates: start: 20070312, end: 20070312
  3. PLAVIX /01220701/ (CLOPIDOGREL SULFATE) [Concomitant]

REACTIONS (1)
  - STENT OCCLUSION [None]
